FAERS Safety Report 14880300 (Version 1)
Quarter: 2018Q2

REPORT INFORMATION
  Report Type: Spontaneous
  Country: US (occurrence: US)
  Receive Date: 20180425
  Receipt Date: 20180425
  Transmission Date: 20180711
  Serious: Yes (Disabling)
  Sender: FDA-Public Use
  Company Number: None

PATIENT
  Age: 59 Year
  Sex: Female
  Weight: 78.75 kg

DRUGS (1)
  1. ELIQUIS [Suspect]
     Active Substance: APIXABAN
     Indication: ATRIAL FIBRILLATION
     Route: 048
     Dates: start: 20180315, end: 20180407

REACTIONS (8)
  - Vomiting [None]
  - Tongue ulceration [None]
  - Dizziness [None]
  - Asthenia [None]
  - Tremor [None]
  - Swollen tongue [None]
  - Swelling face [None]
  - Gait inability [None]

NARRATIVE: CASE EVENT DATE: 20180406
